FAERS Safety Report 14248176 (Version 2)
Quarter: 2017Q4

REPORT INFORMATION
  Report Type: Spontaneous
  Country: GB (occurrence: GB)
  Receive Date: 20171204
  Receipt Date: 20171220
  Transmission Date: 20180321
  Serious: Yes (Other)
  Sender: FDA-Public Use
  Company Number: GB-MYLANLABS-2017M1075114

PATIENT
  Age: 64 Year
  Sex: Male
  Weight: 82 kg

DRUGS (1)
  1. TAMOXIFEN [Suspect]
     Active Substance: TAMOXIFEN
     Indication: PEYRONIE^S DISEASE
     Route: 048
     Dates: start: 20170426, end: 20170430

REACTIONS (5)
  - Syncope [Recovered/Resolved]
  - Muscular weakness [Recovered/Resolved]
  - Loss of consciousness [Recovered/Resolved]
  - Off label use [Unknown]
  - Dizziness [Recovered/Resolved]

NARRATIVE: CASE EVENT DATE: 20170426
